FAERS Safety Report 7013240-2 (Version None)
Quarter: 2010Q3

REPORT INFORMATION
  Report Type: 
  Country: None (occurrence: None)
  Receive Date: 20100924
  Receipt Date: 20100916
  Transmission Date: 20110219
  Serious: Yes (Hospitalization, Other)
  Sender: FDA-Public Use
  Company Number: CA-MERCK-1009USA03715

PATIENT
  Age: 58 Year
  Sex: Male
  Weight: 80 kg

DRUGS (4)
  1. FOSAMAX PLUS D [Suspect]
     Route: 048
  2. FOSAMAX PLUS D [Suspect]
     Route: 048
  3. ATACAND [Concomitant]
     Route: 065
  4. SOTALOL HYDROCHLORIDE [Concomitant]
     Route: 065

REACTIONS (2)
  - ATRIAL FIBRILLATION [None]
  - CARDIAC DISORDER [None]
